FAERS Safety Report 9631210 (Version 1)
Quarter: 2013Q4

REPORT INFORMATION
  Report Type: Spontaneous
  Country: TR (occurrence: TR)
  Receive Date: 20131018
  Receipt Date: 20131018
  Transmission Date: 20140711
  Serious: Yes (Death, Other)
  Sender: FDA-Public Use
  Company Number: TR-ALEXION PHARMACEUTICALS INC.-A201302652

PATIENT
  Age: 20 Year
  Sex: Female

DRUGS (2)
  1. SOLIRIS 300MG [Suspect]
     Indication: PAROXYSMAL NOCTURNAL HAEMOGLOBINURIA
     Dosage: 900 MG
     Route: 042
     Dates: start: 20130531
  2. SOLIRIS 300MG [Suspect]
     Dosage: 600 MG
     Route: 042
     Dates: start: 20130628

REACTIONS (2)
  - Multi-organ failure [Fatal]
  - Pancytopenia [Unknown]
